FAERS Safety Report 17678444 (Version 1)
Quarter: 2020Q2

REPORT INFORMATION
  Report Type: Report from Study
  Country: IT (occurrence: IT)
  Receive Date: 20200417
  Receipt Date: 20200417
  Transmission Date: 20200714
  Serious: Yes (Other)
  Sender: FDA-Public Use
  Company Number: IT-ROCHE-2583124

PATIENT
  Sex: Male
  Weight: 68 kg

DRUGS (1)
  1. ALECENSA [Suspect]
     Active Substance: ALECTINIB HYDROCHLORIDE
     Indication: NON-SMALL CELL LUNG CANCER
     Dosage: 600 MG TWICE/DIE ;ONGOING: NO
     Route: 002
     Dates: start: 20190601

REACTIONS (2)
  - Disease progression [Unknown]
  - Drug ineffective [Unknown]
